FAERS Safety Report 7997542-9 (Version None)
Quarter: 2011Q4

REPORT INFORMATION
  Report Type: 
  Country: None (occurrence: None)
  Receive Date: 20111221
  Receipt Date: 20111216
  Transmission Date: 20120403
  Serious: Yes (Other)
  Sender: FDA-Public Use
  Company Number: FR-PFIZER INC-2011307402

PATIENT
  Sex: Female

DRUGS (1)
  1. RELPAX [Suspect]
     Dosage: 1 DF
     Dates: start: 20111216

REACTIONS (2)
  - PHARYNGEAL OEDEMA [None]
  - DYSPHAGIA [None]
